FAERS Safety Report 6971084-1 (Version None)
Quarter: 2010Q3

REPORT INFORMATION
  Report Type: 
  Country: None (occurrence: None)
  Receive Date: 20100903
  Receipt Date: 20100825
  Transmission Date: 20110219
  Serious: Yes (Other)
  Sender: FDA-Public Use
  Company Number: 2010SP046334

PATIENT
  Age: 21 Year
  Sex: Female
  Weight: 75 kg

DRUGS (1)
  1. NUVARING [Suspect]
     Indication: CONTRACEPTION
     Dosage: QM; VAG
     Route: 067
     Dates: start: 20100815

REACTIONS (2)
  - DRUG PRESCRIBING ERROR [None]
  - TEMPORAL ARTERITIS [None]
